FAERS Safety Report 15336232 (Version 4)
Quarter: 2019Q1

REPORT INFORMATION
  Report Type: Report from Study
  Country: ES (occurrence: ES)
  Receive Date: 20180830
  Receipt Date: 20190130
  Transmission Date: 20190417
  Serious: Yes (Hospitalization)
  Sender: FDA-Public Use
  Company Number: ES-EISAI MEDICAL RESEARCH-EC-2018-044488

PATIENT
  Age: 77 Year
  Sex: Male
  Weight: 77.1 kg

DRUGS (20)
  1. CALCIUM [Concomitant]
     Active Substance: CALCIUM
  2. TRIMETOPRIMA [Concomitant]
     Active Substance: TRIMETHOPRIM
  3. ESOMEPRAZOLE. [Concomitant]
     Active Substance: ESOMEPRAZOLE MAGNESIUM
  4. SOLIFENACIN [Concomitant]
     Active Substance: SOLIFENACIN
  5. ASA [Concomitant]
     Active Substance: ASPIRIN
  6. MANIDIPINE [Concomitant]
     Active Substance: MANIDIPINE
  7. PRAVASTATIN. [Concomitant]
     Active Substance: PRAVASTATIN
  8. MIRABEGRON [Concomitant]
     Active Substance: MIRABEGRON
  9. CYANOCOBALAMINE [Concomitant]
     Active Substance: CYANOCOBALAMIN
  10. SULFAMETHOXAZOL [Concomitant]
     Active Substance: SULFAMETHOXAZOLE
  11. LENVATINIB [Suspect]
     Active Substance: LENVATINIB
     Indication: RENAL CELL CARCINOMA
     Route: 048
     Dates: start: 20180820, end: 20180824
  12. ATORVASTATIN [Concomitant]
     Active Substance: ATORVASTATIN
  13. CLEBOPRIDA SIMETICONA [Concomitant]
  14. CALCIUM CARBONATE/CHOLECALCIFEROL [Concomitant]
     Active Substance: CALCIUM CARBONATE\CHOLECALCIFEROL
  15. MOVICOL [Concomitant]
     Active Substance: POLYETHYLENE GLYCOL 3350\POTASSIUM CHLORIDE\SODIUM BICARBONATE\SODIUM CHLORIDE
  16. EVEROLIMUS. [Suspect]
     Active Substance: EVEROLIMUS
     Indication: RENAL CELL CARCINOMA
     Route: 048
     Dates: start: 20180820, end: 20180824
  17. DUTASTERIDE. [Concomitant]
     Active Substance: DUTASTERIDE
  18. ENALAPRIL [Concomitant]
     Active Substance: ENALAPRIL
  19. REPAGLINIDE. [Concomitant]
     Active Substance: REPAGLINIDE
  20. TAMSULOSIN [Concomitant]
     Active Substance: TAMSULOSIN

REACTIONS (1)
  - Hepatitis [Recovered/Resolved]

NARRATIVE: CASE EVENT DATE: 20180825
